FAERS Safety Report 8356012-9 (Version None)
Quarter: 2012Q2

REPORT INFORMATION
  Report Type: 
  Country: None (occurrence: None)
  Receive Date: 20120514
  Receipt Date: 20120507
  Transmission Date: 20120825
  Serious: Yes (Hospitalization, Other)
  Sender: FDA-Public Use
  Company Number: BR-SANOFI-AVENTIS-2012SA032324

PATIENT
  Age: 19 Year
  Sex: Female
  Weight: 53 kg

DRUGS (4)
  1. LANTUS [Suspect]
     Dosage: DOSE INCREASED
     Route: 065
  2. NOVORAPID [Concomitant]
     Dosage: DOSE ACCORDING TO BLOOD GLUCOSE
     Route: 058
     Dates: start: 20080101
  3. AUTOPEN 24 [Suspect]
     Indication: DEVICE THERAPY
     Dates: start: 20080101
  4. LANTUS [Suspect]
     Dosage: 3 ML CARTRIDGE
     Route: 058
     Dates: start: 20080101

REACTIONS (4)
  - HYPERGLYCAEMIA [None]
  - APPLICATION SITE BLEEDING [None]
  - VOMITING [None]
  - KETOACIDOSIS [None]
